FAERS Safety Report 8801847 (Version 2)
Quarter: 2012Q4

REPORT INFORMATION
  Report Type: 
  Country: US (occurrence: US)
  Receive Date: 20120921
  Receipt Date: 20121017
  Transmission Date: 20130627
  Serious: Yes (Death)
  Sender: FDA-Public Use
  Company Number: US-ROCHE-1132905

PATIENT
  Sex: Male

DRUGS (11)
  1. ACTEMRA [Suspect]
     Indication: RHEUMATOID ARTHRITIS
     Route: 042
     Dates: start: 20110418
  2. ACTEMRA [Suspect]
     Route: 042
     Dates: start: 20120423
  3. ACTEMRA [Suspect]
     Route: 042
     Dates: start: 20120521
  4. ACTEMRA [Suspect]
     Route: 042
     Dates: start: 20120618
  5. ACTEMRA [Suspect]
     Route: 042
     Dates: start: 20120719
  6. IBUPROFEN [Concomitant]
  7. GABAPENTIN [Concomitant]
     Route: 048
  8. ARAVA [Concomitant]
     Route: 065
  9. FOLIC ACID [Concomitant]
     Route: 048
  10. LISINOPRIL [Concomitant]
  11. MOTRIN [Concomitant]

REACTIONS (1)
  - Death [Fatal]
